FAERS Safety Report 15114861 (Version 1)
Quarter: 2018Q3

REPORT INFORMATION
  Report Type: Spontaneous
  Country: US (occurrence: US)
  Receive Date: 20180706
  Receipt Date: 20180706
  Transmission Date: 20181010
  Serious: Yes (Death, Other)
  Sender: FDA-Public Use
  Company Number: US-JAZZ-2014-US-003609

PATIENT
  Sex: Female

DRUGS (1)
  1. XYREM [Suspect]
     Active Substance: SODIUM OXYBATE
     Indication: FOETAL EXPOSURE DURING PREGNANCY

REACTIONS (5)
  - Seizure [Unknown]
  - Respiratory disorder [Unknown]
  - Blindness [Unknown]
  - Cerebral disorder [Fatal]
  - Foetal exposure during pregnancy [Unknown]
